FAERS Safety Report 15537111 (Version 1)
Quarter: 2018Q4

REPORT INFORMATION
  Report Type: Spontaneous
  Country: CA (occurrence: CA)
  Receive Date: 20181022
  Receipt Date: 20181022
  Transmission Date: 20190205
  Serious: Yes (Other)
  Sender: FDA-Public Use
  Company Number: CA-EMD SERONO-9048213

PATIENT
  Age: 11 Year
  Sex: Female

DRUGS (2)
  1. SOMATROPIN. [Suspect]
     Active Substance: SOMATROPIN
     Indication: GROWTH RETARDATION
     Route: 058
  2. EMLA [Concomitant]
     Active Substance: LIDOCAINE\PRILOCAINE
     Indication: LOCAL ANAESTHESIA
     Route: 061

REACTIONS (6)
  - Wrong technique in product usage process [Unknown]
  - Injection site bruising [Unknown]
  - Crying [Unknown]
  - Headache [Unknown]
  - Sinusitis [Unknown]
  - Drug ineffective [Unknown]
